FAERS Safety Report 8319917-0 (Version None)
Quarter: 2012Q2

REPORT INFORMATION
  Report Type: 
  Country: None (occurrence: None)
  Receive Date: 20120427
  Receipt Date: 20120423
  Transmission Date: 20120825
  Serious: No
  Sender: FDA-Public Use
  Company Number: PHHY2012BR003110

PATIENT
  Sex: Female
  Weight: 73 kg

DRUGS (1)
  1. BUFFERIN [Suspect]
     Indication: THROMBOSIS
     Dosage: 1 DF, UNK
     Route: 048

REACTIONS (1)
  - TACHYCARDIA [None]
